FAERS Safety Report 9797474 (Version 2)
Quarter: 2014Q1

REPORT INFORMATION
  Report Type: Spontaneous
  Country: GB (occurrence: GB)
  Receive Date: 20140106
  Receipt Date: 20140106
  Transmission Date: 20141002
  Serious: Yes (Other)
  Sender: FDA-Public Use
  Company Number: PHFR2013GB005952

PATIENT
  Age: 34 Year
  Sex: Male

DRUGS (3)
  1. CLOZARIL [Suspect]
     Indication: SCHIZOPHRENIA
     Dosage: UNK UKN, UNK
     Route: 048
     Dates: start: 20131008, end: 20131212
  2. QUETIAPINE [Suspect]
     Dosage: UNK UKN, UNK
  3. METFORMIN [Concomitant]
     Indication: DIABETES MELLITUS
     Dosage: 37.5 MG, QD

REACTIONS (7)
  - Heart rate increased [Unknown]
  - Troponin increased [Unknown]
  - Drug intolerance [Unknown]
  - Renal impairment [Unknown]
  - Proteinuria [Unknown]
  - Haematuria [Unknown]
  - Blood pressure increased [Unknown]
